FAERS Safety Report 17334381 (Version 1)
Quarter: 2020Q1

REPORT INFORMATION
  Report Type: Spontaneous
  Country: US (occurrence: US)
  Receive Date: 20200128
  Receipt Date: 20200128
  Transmission Date: 20200409
  Serious: Yes (Other)
  Sender: FDA-Public Use
  Company Number: US-RITE AID CORPORATION-2079504

PATIENT
  Sex: Female

DRUGS (1)
  1. MUCUS RELIEF SEVERE CONGESTION AND COUGH MAXIMUM STRENGTH [Suspect]
     Active Substance: DEXTROMETHORPHAN HYDROBROMIDE\GUAIFENESIN\PHENYLEPHRINE HYDROCHLORIDE
     Indication: PULMONARY CONGESTION
     Route: 048
     Dates: start: 20200114

REACTIONS (3)
  - Diarrhoea [None]
  - Lymphadenopathy [None]
  - Vomiting [None]
